FAERS Safety Report 20191498 (Version 2)
Quarter: 2021Q4

REPORT INFORMATION
  Report Type: Spontaneous
  Country: FR (occurrence: FR)
  Receive Date: 20211216
  Receipt Date: 20211224
  Transmission Date: 20220303
  Serious: Yes (Death, Other)
  Sender: FDA-Public Use
  Company Number: FR-AFSSAPS-NY20215197

PATIENT
  Age: 76 Year
  Sex: Male
  Weight: 58 kg

DRUGS (13)
  1. AMIODARONE [Suspect]
     Active Substance: AMIODARONE
     Indication: Atrial fibrillation
     Dosage: 1 DOSAGE FORM, ONCE A DAY
     Route: 048
     Dates: start: 20200207, end: 20210315
  2. AMIODARONE [Suspect]
     Active Substance: AMIODARONE
     Dosage: 1 DOSAGE FORM, ONCE A DAY
     Route: 048
     Dates: start: 20210804
  3. JANSSEN COVID-19 VACCINE [Suspect]
     Active Substance: AD26.COV2.S
     Indication: COVID-19 immunisation
     Dosage: 1 DOSAGE FORM (D1)
     Route: 030
     Dates: start: 20210716, end: 20210716
  4. BISOPROLOL [Concomitant]
     Active Substance: BISOPROLOL
     Indication: Atrial fibrillation
     Dosage: 1 DOSAGE FORM, ONCE A DAY
     Route: 048
     Dates: start: 20210315, end: 20211010
  5. EXELON [Concomitant]
     Active Substance: RIVASTIGMINE TARTRATE
     Indication: Cognitive disorder
     Dosage: 1 DOSAGE FORM, ONCE A DAY (LONG COURS)
     Route: 048
  6. ELIQUIS [Concomitant]
     Active Substance: APIXABAN
     Indication: Atrial fibrillation
     Dosage: 1 DOSAGE FORM, ONCE A DAY
     Route: 048
     Dates: start: 20200202
  7. ELIQUIS [Concomitant]
     Active Substance: APIXABAN
     Dosage: 1 DOSAGE FORM, ONCE A DAY
     Route: 048
     Dates: start: 20210804
  8. RISPERIDONE [Concomitant]
     Active Substance: RISPERIDONE
     Indication: Mental disorder
     Dosage: 1 DOSAGE FORM, ONCE A DAY (LONG COURS)
     Route: 048
     Dates: start: 201910, end: 202008
  9. RISPERIDONE [Concomitant]
     Active Substance: RISPERIDONE
     Dosage: 1 DOSAGE FORM, ONCE A DAY
     Route: 048
     Dates: start: 202105, end: 20211010
  10. ALFUZOSIN [Concomitant]
     Active Substance: ALFUZOSIN
     Indication: Product used for unknown indication
     Dosage: 1 DOSAGE FORM, ONCE A DAY (LONG COURS)
     Route: 048
  11. SILODOSIN [Concomitant]
     Active Substance: SILODOSIN
     Indication: Prostatic adenoma
     Dosage: 1 DOSAGE FORM, ONCE A DAY (LONG COURS)
     Route: 048
     Dates: start: 202004
  12. LEVOTHYROXINE [Concomitant]
     Active Substance: LEVOTHYROXINE
     Indication: Product used for unknown indication
     Dosage: 1 DOSAGE FORM, ONCE A DAY
     Route: 048
     Dates: start: 20211002, end: 20211010
  13. FUROSEMIDE [Concomitant]
     Active Substance: FUROSEMIDE
     Indication: Product used for unknown indication
     Dosage: 40 MILLIGRAM, ONCE A DAY
     Route: 065
     Dates: start: 202002

REACTIONS (4)
  - Immune-mediated myositis [Fatal]
  - Sjogren^s syndrome [Fatal]
  - Interstitial lung disease [Fatal]
  - Cyanosis [Fatal]

NARRATIVE: CASE EVENT DATE: 20210801
